FAERS Safety Report 23270577 (Version 5)
Quarter: 2024Q4

REPORT INFORMATION
  Report Type: Spontaneous
  Country: US (occurrence: US)
  Receive Date: 20231207
  Receipt Date: 20241021
  Transmission Date: 20250115
  Serious: Yes (Other)
  Sender: BRISTOL-MYERS SQUIBB COMPANY
  Company Number: US-BRISTOL-MYERS SQUIBB COMPANY-2023-173507

PATIENT
  Age: 81 Year
  Sex: Female

DRUGS (1)
  1. POMALYST [Suspect]
     Active Substance: POMALIDOMIDE
     Indication: Plasma cell myeloma
     Dosage: 21 D ON 7 D OFF/QD FOR 21 DAYS ON AND 7 DAYS OFF
     Route: 048

REACTIONS (7)
  - Blood creatinine decreased [Unknown]
  - Urinary tract infection [Unknown]
  - Epistaxis [Unknown]
  - Fatigue [Unknown]
  - Arthralgia [Unknown]
  - Hypotension [Unknown]
  - Dehydration [Unknown]
